FAERS Safety Report 9532083 (Version 2)
Quarter: 2013Q3

REPORT INFORMATION
  Report Type: Spontaneous
  Country: US (occurrence: US)
  Receive Date: 20130918
  Receipt Date: 20130918
  Transmission Date: 20140515
  Serious: Yes (Hospitalization)
  Sender: FDA-Public Use
  Company Number: US-UCBSA-095245

PATIENT
  Sex: Male

DRUGS (2)
  1. KEPPRA XR [Suspect]
     Indication: CONVULSION
     Dosage: 500MG 4/DAY
     Route: 048
  2. TRILEPTAL [Concomitant]
     Indication: CONVULSION

REACTIONS (2)
  - Head injury [Unknown]
  - Convulsion [Unknown]
